FAERS Safety Report 8364410-2 (Version None)
Quarter: 2012Q2

REPORT INFORMATION
  Report Type: 
  Country: None (occurrence: None)
  Receive Date: 20120516
  Receipt Date: 20120510
  Transmission Date: 20120825
  Serious: Yes (Hospitalization)
  Sender: FDA-Public Use
  Company Number: US-BAYER-2011-112144

PATIENT
  Age: 47 Year
  Sex: Female
  Weight: 70.295 kg

DRUGS (21)
  1. AMBIEN [Concomitant]
     Dosage: 10 MG, UNK
  2. SINGULAIR [Concomitant]
     Dosage: 10 MG, HS
  3. NORFLEX [Concomitant]
  4. AZITHROMYCIN [Concomitant]
     Dosage: 250 MG, UNK
     Dates: start: 20070517
  5. AMOXICILLIN [Concomitant]
     Dosage: 500 MG, UNK
     Dates: start: 20070620
  6. HERBALIFE PRODUCTS [Concomitant]
  7. CELEBREX [Concomitant]
     Dosage: 200 MG, DAILY
  8. XANAX [Concomitant]
     Dosage: 0.5 MG, PRN
  9. SENOKOT [Concomitant]
  10. HYDROCODONE BITARTRATE AND ACETAMINOPHEN [Concomitant]
     Dosage: UNK
     Dates: start: 20070625
  11. TRAMADOL HYDROCHLORIDE [Concomitant]
     Dosage: 50 MG, QID
  12. DICLOFENAC SODIUM [Concomitant]
  13. VITAMIN D [Concomitant]
  14. YASMIN [Suspect]
     Indication: MENSTRUATION IRREGULAR
     Dosage: UNK
     Route: 048
     Dates: start: 20050101, end: 20070801
  15. CARISOPRODOL [Concomitant]
  16. VITAMIN B12 [Concomitant]
  17. YASMIN [Suspect]
     Indication: PREMENSTRUAL SYNDROME
  18. MUCINEX [Concomitant]
  19. PROZAC [Concomitant]
     Dosage: 20 MG, DAILY
  20. HYCOCLEAR TUSS [Concomitant]
  21. LUNESTA [Concomitant]
     Dosage: 2 MG, UNK
     Dates: start: 20070817

REACTIONS (6)
  - DEPRESSION [None]
  - PAIN [None]
  - ANXIETY [None]
  - PULMONARY INFARCTION [None]
  - PULMONARY EMBOLISM [None]
  - EMOTIONAL DISTRESS [None]
